FAERS Safety Report 8851253 (Version 3)
Quarter: 2012Q4

REPORT INFORMATION
  Report Type: 
  Country: JP (occurrence: JP)
  Receive Date: 20121019
  Receipt Date: 20121108
  Transmission Date: 20130627
  Serious: Yes (Life-Threatening)
  Sender: FDA-Public Use
  Company Number: JP-NAPPMUNDI-GBR-2012-0011658

PATIENT
  Age: 63 Year
  Sex: Male

DRUGS (18)
  1. MST CONTINUS [Suspect]
     Indication: CANCER PAIN
     Dosage: 10 mg, bid
     Route: 048
     Dates: start: 20121002, end: 20121004
  2. CALTAN [Concomitant]
     Indication: RENAL FAILURE CHRONIC
     Dosage: 3000 mg, daily
     Route: 048
  3. ONEALFA [Concomitant]
     Indication: OSTEOPOROSIS
     Dosage: 0.25 mcg, daily
     Route: 048
  4. GASTER [Concomitant]
     Indication: GASTRIC ULCER
     Dosage: 20 mg, daily
     Route: 048
  5. ALLOZYM [Concomitant]
     Indication: HYPERURICAEMIA
     Dosage: 200 mg, daily
     Route: 048
  6. ZOPICOOL [Concomitant]
     Indication: INSOMNIA
     Dosage: 7.5 mg, daily
     Route: 048
  7. REMITCH [Concomitant]
     Indication: PRURITUS
     Dosage: 2.5 mcg, daily
     Route: 048
  8. FOSRENOL [Concomitant]
     Indication: HYPERPROLACTINAEMIA
     Dosage: 1500 mg, daily
     Route: 048
  9. OXAROL [Concomitant]
     Dosage: 5 mcg, daily
     Route: 042
     Dates: start: 20121013, end: 20121013
  10. OXAROL [Concomitant]
     Dosage: 5 mcg, daily
     Route: 042
     Dates: start: 20121011, end: 20121011
  11. OXAROL [Concomitant]
     Dosage: 5 mcg, daily
     Route: 042
     Dates: start: 20121009, end: 20121009
  12. OXAROL [Concomitant]
     Dosage: 5 mcg, daily
     Route: 042
     Dates: start: 20121006, end: 20121006
  13. OXAROL [Concomitant]
     Dosage: 5 mcg, daily
     Route: 042
     Dates: start: 20121004, end: 20121004
  14. OXAROL [Concomitant]
     Dosage: 5 mcg, daily
     Route: 042
     Dates: start: 20121002, end: 20121002
  15. NESP [Concomitant]
     Dosage: 20 mcg, daily
     Route: 042
     Dates: start: 20121009, end: 20121009
  16. NESP [Concomitant]
     Dosage: 20 mcg, daily
     Dates: start: 20121002, end: 20121002
  17. FESIN                              /00061701/ [Concomitant]
     Dosage: 40 mg, daily
     Route: 042
     Dates: start: 20121009, end: 20121009
  18. FESIN                              /00061701/ [Concomitant]
     Dosage: 40 mg, daily
     Dates: start: 20121002, end: 20121002

REACTIONS (5)
  - Hypoglycaemia [Not Recovered/Not Resolved]
  - Decreased appetite [None]
  - Somnolence [None]
  - Depressed level of consciousness [None]
  - Dialysis [None]
